FAERS Safety Report 7973555 (Version 10)
Quarter: 2013Q2

REPORT INFORMATION
  Report Type: Report from Study
  Country: CA (occurrence: CA)
  Receive Date: 20110603
  Receipt Date: 20130618
  Transmission Date: 20140414
  Serious: Yes (Other)
  Sender: FDA-Public Use
  Company Number: CA-ROCHE-768950

PATIENT
  Age: 53 Year
  Sex: Male
  Weight: 120 kg

DRUGS (14)
  1. ACTEMRA [Suspect]
     Indication: RHEUMATOID ARTHRITIS
     Route: 042
     Dates: start: 20100917, end: 20100917
  2. ACTEMRA [Suspect]
     Route: 042
     Dates: start: 20110203, end: 20110203
  3. ACTEMRA [Suspect]
     Route: 042
  4. ACTEMRA [Suspect]
     Route: 042
  5. INFLIXIMAB [Concomitant]
     Route: 065
  6. RAMIPRIL [Concomitant]
     Indication: BLOOD PRESSURE
     Route: 065
  7. CELEBREX [Concomitant]
  8. TRAMADOL [Concomitant]
     Indication: PAIN
  9. HYDROXYCHLOROQUINE [Concomitant]
  10. MINOCYCLINE [Concomitant]
     Indication: PROPHYLAXIS
  11. DICLOFENAC [Concomitant]
  12. METHOTREXATE [Concomitant]
     Route: 065
  13. METFORMIN [Concomitant]
  14. GLIBENCLAMIDE [Concomitant]

REACTIONS (14)
  - Nephrolithiasis [Recovered/Resolved]
  - Rheumatoid arthritis [Not Recovered/Not Resolved]
  - Renal colic [Not Recovered/Not Resolved]
  - Chest discomfort [Recovered/Resolved]
  - Dyspnoea [Recovering/Resolving]
  - Cough [Not Recovered/Not Resolved]
  - Influenza like illness [Recovered/Resolved]
  - Feeling hot [Recovered/Resolved]
  - Cystitis [Not Recovered/Not Resolved]
  - Nausea [Recovered/Resolved]
  - Vomiting [Recovered/Resolved]
  - Pain [Not Recovered/Not Resolved]
  - Infection [Unknown]
  - Fatigue [Not Recovered/Not Resolved]
